FAERS Safety Report 5681296-5 (Version None)
Quarter: 2008Q1

REPORT INFORMATION
  Report Type: 
  Country: None (occurrence: None)
  Receive Date: 20080326
  Receipt Date: 20070117
  Transmission Date: 20080703
  Serious: No
  Sender: FDA-Public Use
  Company Number: US-BAYER-US-2007-001602

PATIENT
  Age: 40 Year
  Sex: Female
  Weight: 86 kg

DRUGS (12)
  1. MIRENA [Suspect]
     Indication: MENORRHAGIA
     Route: 015
     Dates: start: 20061023, end: 20061101
  2. TAPAZOL [Concomitant]
  3. WARFARIN SODIUM [Concomitant]
  4. PAXIL [Concomitant]
  5. SINGULAIR [Concomitant]
  6. LISINOPRIL [Concomitant]
  7. HYDROCHLOROTHIAZIDE [Concomitant]
  8. SIMVASTATIN [Concomitant]
  9. CLONAZEPAM [Concomitant]
  10. NEXIUM [Concomitant]
  11. POTASSIUM CHLORIDE [Concomitant]
     Dosage: UNIT DOSE: 20 MEQ
  12. AMOXICILLIN [Concomitant]
     Indication: SINUSITIS

REACTIONS (2)
  - ABDOMINAL PAIN [None]
  - INTRA-UTERINE CONTRACEPTIVE DEVICE EXPELLED [None]
